FAERS Safety Report 13757625 (Version 7)
Quarter: 2019Q1

REPORT INFORMATION
  Report Type: Report from Study
  Country: DE (occurrence: DE)
  Receive Date: 20170717
  Receipt Date: 20190311
  Transmission Date: 20190417
  Serious: Yes (Hospitalization)
  Sender: FDA-Public Use
  Company Number: DE-ROCHE-1933539

PATIENT
  Age: 65 Year
  Sex: Female

DRUGS (4)
  1. COBIMETINIB. [Suspect]
     Active Substance: COBIMETINIB
     Route: 048
     Dates: start: 20170524, end: 20170706
  2. COBIMETINIB. [Suspect]
     Active Substance: COBIMETINIB
     Indication: METASTATIC MALIGNANT MELANOMA
     Dosage: DATE OF MOST RECENT DOSE PRIOR TO EVENT: 05/MAY/2017?DATE OF MOST RECENT DOSE PRIOR TO EVENT: 08/MAY
     Route: 048
     Dates: start: 20170424, end: 20170509
  3. VEMURAFENIB. [Suspect]
     Active Substance: VEMURAFENIB
     Route: 048
     Dates: start: 20170524, end: 20170606
  4. VEMURAFENIB. [Suspect]
     Active Substance: VEMURAFENIB
     Indication: METASTATIC MALIGNANT MELANOMA
     Dosage: DATE OF MOST RECENT DOSE PRIOR TO EVENT: 05/MAY/2017?DATE OF MOST RECENT DOSE PRIOR TO EVENT: 08/MAY
     Route: 048
     Dates: start: 20170424, end: 20170509

REACTIONS (4)
  - Syncope [Recovered/Resolved]
  - Large intestinal haemorrhage [Recovered/Resolved]
  - Rash maculo-papular [Recovered/Resolved]
  - Hyponatraemia [Recovered/Resolved]

NARRATIVE: CASE EVENT DATE: 20170506
